FAERS Safety Report 14454567 (Version 2)
Quarter: 2018Q1

REPORT INFORMATION
  Report Type: Spontaneous
  Country: JP (occurrence: JP)
  Receive Date: 20180129
  Receipt Date: 20180221
  Transmission Date: 20180509
  Serious: Yes (Death, Other)
  Sender: FDA-Public Use
  Company Number: JP-009507513-1801JPN002349J

PATIENT
  Age: 90 Year
  Sex: Female

DRUGS (1)
  1. CANCIDAS [Suspect]
     Active Substance: CASPOFUNGIN ACETATE
     Dosage: 50 MG, QD
     Route: 041
     Dates: start: 20171207, end: 20171218

REACTIONS (3)
  - Interstitial lung disease [Fatal]
  - General physical health deterioration [Unknown]
  - Aspiration [Unknown]

NARRATIVE: CASE EVENT DATE: 201712
